FAERS Safety Report 12183612 (Version 1)
Quarter: 2016Q1

REPORT INFORMATION
  Report Type: Spontaneous
  Country: US (occurrence: US)
  Receive Date: 20160316
  Receipt Date: 20160316
  Transmission Date: 20160526
  Serious: No
  Sender: FDA-Public Use
  Company Number: US-PFIZER INC-2016113891

PATIENT
  Age: 49 Year
  Sex: Female
  Weight: 63 kg

DRUGS (1)
  1. LYRICA [Suspect]
     Active Substance: PREGABALIN
     Indication: NEUROPATHY PERIPHERAL
     Dosage: 150 MG, 3X/DAY
     Dates: start: 201511

REACTIONS (4)
  - Feeling abnormal [Recovered/Resolved]
  - Intentional product use issue [Recovered/Resolved]
  - Dizziness [Recovered/Resolved]
  - Pain [Recovered/Resolved]

NARRATIVE: CASE EVENT DATE: 2016
